FAERS Safety Report 20880208 (Version 1)
Quarter: 2022Q2

REPORT INFORMATION
  Report Type: Spontaneous
  Country: US (occurrence: US)
  Receive Date: 20220526
  Receipt Date: 20220526
  Transmission Date: 20220721
  Serious: No
  Sender: FDA-Public Use
  Company Number: US-RADIUS HEALTH INC.-2022US000584

PATIENT
  Sex: Female
  Weight: 59.864 kg

DRUGS (1)
  1. TYMLOS [Suspect]
     Active Substance: ABALOPARATIDE
     Indication: Osteoporotic fracture
     Dosage: 80 MCG, DAILY
     Route: 058
     Dates: start: 202103

REACTIONS (4)
  - Exfoliative rash [Unknown]
  - Skin burning sensation [Unknown]
  - Rash erythematous [Unknown]
  - Rash pruritic [Unknown]
